FAERS Safety Report 12573794 (Version 1)
Quarter: 2016Q3

REPORT INFORMATION
  Report Type: Spontaneous
  Country: US (occurrence: US)
  Receive Date: 20160720
  Receipt Date: 20160720
  Transmission Date: 20161109
  Serious: No
  Sender: FDA-Public Use
  Company Number: US-PFIZER INC-2016336981

PATIENT
  Age: 5 Year
  Sex: Female
  Weight: 26.3 kg

DRUGS (1)
  1. QUILLIVANT XR [Suspect]
     Active Substance: METHYLPHENIDATE HYDROCHLORIDE
     Indication: ATTENTION DEFICIT/HYPERACTIVITY DISORDER
     Dosage: 5 ML, DAILY
     Route: 048

REACTIONS (4)
  - Wrong technique in product usage process [Unknown]
  - Dysgeusia [Unknown]
  - Dysphagia [Unknown]
  - Product use issue [Unknown]
